FAERS Safety Report 9882692 (Version 2)
Quarter: 2014Q1

REPORT INFORMATION
  Report Type: Spontaneous
  Country: US (occurrence: US)
  Receive Date: 20140207
  Receipt Date: 20140207
  Transmission Date: 20141002
  Serious: Yes (Other)
  Sender: FDA-Public Use
  Company Number: US-GE HEALTHCARE MEDICAL DIAGNOSTICS-OSCN-PR-0807S-0464

PATIENT
  Sex: Male

DRUGS (10)
  1. OMNISCAN [Suspect]
     Indication: MUSCULOSKELETAL PAIN
     Dates: start: 20010511, end: 20010511
  2. OMNISCAN [Suspect]
     Indication: CHEST PAIN
     Dates: start: 20030731, end: 20030731
  3. OMNISCAN [Suspect]
     Indication: LIPOMA
     Dates: start: 20040827, end: 20040827
  4. OMNISCAN [Suspect]
     Indication: HAEMANGIOMA
  5. OMNISCAN [Suspect]
     Indication: HEPATIC LESION
  6. OMNISCAN [Suspect]
     Indication: SUBCLAVIAN ARTERY STENOSIS
  7. DOXAZOSIN [Concomitant]
  8. ENDOCET [Concomitant]
  9. PROTONIX [Concomitant]
  10. VITAMIN K [Concomitant]

REACTIONS (1)
  - Nephrogenic systemic fibrosis [Not Recovered/Not Resolved]
